FAERS Safety Report 9682948 (Version 2)
Quarter: 2013Q4

REPORT INFORMATION
  Report Type: Report from Study
  Country: GR (occurrence: GR)
  Receive Date: 20131112
  Receipt Date: 20131118
  Transmission Date: 20140711
  Serious: Yes (Hospitalization, Disabling)
  Sender: FDA-Public Use
  Company Number: GR-SA-2013SA113301

PATIENT
  Age: 81 Year
  Sex: Female

DRUGS (3)
  1. RIFAMPICIN [Suspect]
     Indication: INTERVERTEBRAL DISCITIS
     Route: 065
  2. AMOXICILLIN [Concomitant]
     Indication: INTERVERTEBRAL DISCITIS
  3. CLAVULANIC ACID [Concomitant]
     Indication: INTERVERTEBRAL DISCITIS

REACTIONS (1)
  - Paraplegia [Unknown]
